FAERS Safety Report 8561919-3 (Version None)
Quarter: 2012Q3

REPORT INFORMATION
  Report Type: 
  Country: None (occurrence: None)
  Receive Date: 20120802
  Receipt Date: 20120706
  Transmission Date: 20120928
  Serious: No
  Sender: FDA-Public Use
  Company Number: US-AMGEN-USASP2011017330

PATIENT
  Age: 58 Year
  Sex: Female

DRUGS (10)
  1. PLAQUENIL [Concomitant]
     Dosage: 200 MG, QD
     Route: 048
  2. CALCIUM + VITAMIN D [Concomitant]
     Dosage: 1200 MG, QD
     Route: 048
  3. FERROUS SULFATE TAB [Concomitant]
     Dosage: 325 MG, BID
  4. BONIVA [Concomitant]
     Dosage: 150 MG, QMO
     Route: 048
  5. RITUXIMAB [Concomitant]
     Dosage: 1000 MG, UNK
  6. ENBREL [Suspect]
     Indication: RHEUMATOID ARTHRITIS
     Dosage: 50 MG, QWK
     Dates: start: 20110308, end: 20110513
  7. AMLODIPINE [Concomitant]
     Dosage: 5 MG, QD
     Route: 048
  8. OMEPRAZOLE [Concomitant]
     Dosage: 20 MG, QD
     Route: 048
  9. PREDNISONE [Concomitant]
     Dosage: 5 MG, QD
     Route: 048
  10. HYDROCODONE [Concomitant]
     Dosage: UNK UNK, PRN
     Route: 048

REACTIONS (11)
  - INJECTION SITE DISCOLOURATION [None]
  - INJECTION SITE SWELLING [None]
  - INJECTION SITE REACTION [None]
  - JOINT RANGE OF MOTION DECREASED [None]
  - MUSCULAR WEAKNESS [None]
  - INJECTION SITE ERYTHEMA [None]
  - HYPOAESTHESIA [None]
  - PAIN IN EXTREMITY [None]
  - INJECTION SITE PAIN [None]
  - DRUG INEFFECTIVE [None]
  - INJECTION SITE PRURITUS [None]
